FAERS Safety Report 8236259-2 (Version None)
Quarter: 2012Q1

REPORT INFORMATION
  Report Type: 
  Country: None (occurrence: None)
  Receive Date: 20120308
  Receipt Date: 20120209
  Transmission Date: 20120608
  Serious: No
  Sender: FDA-Public Use
  Company Number: 2012-00179

PATIENT
  Age: 67 Year
  Sex: Male
  Weight: 97.0698 kg

DRUGS (3)
  1. ESCITALOPRAM [Concomitant]
  2. SIMVASTATIN [Suspect]
     Indication: BLOOD CHOLESTEROL INCREASED
     Dosage: 40 MG (40 MG, 1 IN 1 D), PER ORAL
     Route: 048
     Dates: start: 20110901
  3. LOSARTAN POTASSIUM AND HYDROCHLOROTHIAZIDE [Concomitant]

REACTIONS (1)
  - DERMATITIS HERPETIFORMIS [None]
